FAERS Safety Report 8101262-X (Version None)
Quarter: 2012Q1

REPORT INFORMATION
  Report Type: 
  Country: None (occurrence: None)
  Receive Date: 20120129
  Receipt Date: 20110916
  Transmission Date: 20120608
  Serious: No
  Sender: FDA-Public Use
  Company Number: US-ABBOTT-11P-163-0856158-00

PATIENT
  Age: 44 Year
  Sex: Male

DRUGS (4)
  1. PRAVASTATIN [Concomitant]
     Indication: BLOOD CHOLESTEROL INCREASED
  2. HUMIRA [Suspect]
     Indication: PSORIASIS
     Dates: start: 20110415, end: 20110804
  3. VENLAFAXINE [Concomitant]
     Indication: HYPERTENSION
  4. BENICAR HCT [Concomitant]
     Indication: HYPERTENSION

REACTIONS (4)
  - PAIN [None]
  - GOUT [None]
  - GAIT DISTURBANCE [None]
  - ARTHRALGIA [None]
